FAERS Safety Report 11518129 (Version 1)
Quarter: 2015Q3

REPORT INFORMATION
  Report Type: Spontaneous
  Country: BR (occurrence: BR)
  Receive Date: 20150917
  Receipt Date: 20150917
  Transmission Date: 20151125
  Serious: Yes (Other)
  Sender: FDA-Public Use
  Company Number: BR-JNJFOC-20150910761

PATIENT
  Sex: Male

DRUGS (1)
  1. REMICADE [Suspect]
     Active Substance: INFLIXIMAB
     Indication: PSORIASIS
     Route: 042
     Dates: start: 20150910, end: 20150910

REACTIONS (6)
  - Dyspnoea [Unknown]
  - Hypothermia [Unknown]
  - Feeling hot [Unknown]
  - Pallor [Unknown]
  - Infusion related reaction [Unknown]
  - Chills [Unknown]

NARRATIVE: CASE EVENT DATE: 20150910
